FAERS Safety Report 16159943 (Version 1)
Quarter: 2019Q2

REPORT INFORMATION
  Report Type: Spontaneous
  Country: DE (occurrence: DE)
  Receive Date: 20190404
  Receipt Date: 20190404
  Transmission Date: 20190711
  Serious: Yes (Other)
  Sender: FDA-Public Use
  Company Number: DE-APOPHARMA USA, INC.-2019AP010626

PATIENT
  Age: 62 Year
  Sex: Male
  Weight: 60 kg

DRUGS (3)
  1. HAEMATE P [Concomitant]
     Active Substance: ANTIHEMOPHILIC FACTOR HUMAN
     Indication: EPISTAXIS
     Dosage: 92 IU/KG, SINGLE
     Route: 065
  2. IMUNOGLOBULIN                      /00025201/ [Concomitant]
     Indication: ACQUIRED VON WILLEBRAND^S DISEASE
     Dosage: 60 G, UNKNOWN
     Route: 042
  3. ALKERAN [Suspect]
     Active Substance: MELPHALAN
     Indication: CHEMOTHERAPY
     Dosage: 200 MG/M2, OTHER
     Route: 065

REACTIONS (1)
  - Febrile neutropenia [Recovered/Resolved]
